FAERS Safety Report 9690171 (Version 3)
Quarter: 2013Q4

REPORT INFORMATION
  Report Type: Report from Study
  Country: BR (occurrence: BR)
  Receive Date: 20131115
  Receipt Date: 20131211
  Transmission Date: 20140711
  Serious: Yes (Other)
  Sender: FDA-Public Use
  Company Number: PHHY2013BR130163

PATIENT
  Age: 75 Year
  Sex: Female
  Weight: 70 kg

DRUGS (5)
  1. ACLASTA [Suspect]
     Indication: OSTEOPOROSIS
     Dosage: 5MG/100ML
     Route: 042
     Dates: start: 2012
  2. LYRICA [Concomitant]
     Indication: ANXIETY
     Dosage: 75 MG, 1 CAPSULE A DAY
     Route: 048
     Dates: start: 2012
  3. RAZAPINA [Concomitant]
     Indication: INSOMNIA
     Dosage: 15 MG, 1 CAPSULE A DAY
     Route: 048
     Dates: start: 2013
  4. CALCIUM D3                         /00944201/ [Concomitant]
     Indication: OSTEOPOROSIS
     Dosage: UNK UKN, UNK
     Route: 048
     Dates: start: 2011
  5. OMEGA 3 [Concomitant]
     Dosage: UNK UKN, UNK
     Dates: start: 2013

REACTIONS (6)
  - Spinal fracture [Unknown]
  - Pain [Unknown]
  - Rib fracture [Recovering/Resolving]
  - Depression [Unknown]
  - Insomnia [Not Recovered/Not Resolved]
  - Weight increased [Recovering/Resolving]
